FAERS Safety Report 5579461-0 (Version None)
Quarter: 2008Q1

REPORT INFORMATION
  Report Type: 
  Country: None (occurrence: None)
  Receive Date: 20080102
  Receipt Date: 20071231
  Transmission Date: 20080703
  Serious: Yes (Other)
  Sender: FDA-Public Use
  Company Number: AU-WYE-G00827707

PATIENT
  Age: 50 Year
  Sex: Female

DRUGS (2)
  1. PREMARIN [Suspect]
     Route: 048
  2. PREMARIN [Suspect]
     Dosage: 6 X 0.625 MG DAILY
     Route: 048

REACTIONS (4)
  - INTENTIONAL OVERDOSE [None]
  - MANIA [None]
  - PERSONALITY CHANGE [None]
  - PSYCHOTIC BEHAVIOUR [None]
